FAERS Safety Report 11741976 (Version 2)
Quarter: 2015Q4

REPORT INFORMATION
  Report Type: Spontaneous
  Country: JP (occurrence: JP)
  Receive Date: 20151116
  Receipt Date: 20151126
  Transmission Date: 20160304
  Serious: Yes (Death, Hospitalization)
  Sender: FDA-Public Use
  Company Number: JP-JNJFOC-20151113345

PATIENT
  Age: 70 Year
  Sex: Female

DRUGS (2)
  1. HALOMONTH [Suspect]
     Active Substance: HALOPERIDOL DECANOATE
     Indication: SCHIZOPHRENIA
     Route: 030
  2. SEDIEL [Concomitant]
     Active Substance: TANDOSPIRONE
     Indication: PRODUCT USED FOR UNKNOWN INDICATION
     Route: 048

REACTIONS (1)
  - Aortic dissection rupture [Fatal]

NARRATIVE: CASE EVENT DATE: 201510
